FAERS Safety Report 6248050-7 (Version None)
Quarter: 2009Q2

REPORT INFORMATION
  Report Type: 
  Country: None (occurrence: None)
  Receive Date: 20090626
  Receipt Date: 20090618
  Transmission Date: 20091009
  Serious: Yes (Other)
  Sender: FDA-Public Use
  Company Number: CA-GILEAD-2009-0021520

PATIENT
  Sex: Male
  Weight: 72 kg

DRUGS (6)
  1. TRUVADA [Suspect]
     Indication: HIV INFECTION
     Route: 048
     Dates: start: 20060101
  2. NEVIRAPINE [Concomitant]
     Indication: HIV INFECTION
     Route: 048
     Dates: start: 20060101
  3. SEROQUEL [Concomitant]
     Indication: SCHIZOPHRENIA
     Dates: start: 20040101
  4. RISPERDAL [Concomitant]
     Indication: SCHIZOPHRENIA
     Dates: start: 20040101
  5. CLONAZEPAM [Concomitant]
     Indication: SCHIZOPHRENIA
     Dates: start: 20040101
  6. COGENTIN [Concomitant]
     Indication: SCHIZOPHRENIA
     Route: 048
     Dates: start: 20040101

REACTIONS (1)
  - OSTEOPOROSIS [None]
